FAERS Safety Report 19465643 (Version 3)
Quarter: 2024Q3

REPORT INFORMATION
  Report Type: Spontaneous
  Country: DE (occurrence: DE)
  Receive Date: 20210626
  Receipt Date: 20240919
  Transmission Date: 20241016
  Serious: Yes (Other)
  Sender: ROCHE
  Company Number: DE-ROCHE-2856977

PATIENT
  Age: 70 Year
  Sex: Female

DRUGS (8)
  1. ATEZOLIZUMAB [Suspect]
     Active Substance: ATEZOLIZUMAB
     Indication: Hepatocellular carcinoma
     Route: 065
  2. BEVACIZUMAB [Suspect]
     Active Substance: BEVACIZUMAB
     Indication: Hepatocellular carcinoma
     Route: 065
  3. SORAFENIB [Concomitant]
     Active Substance: SORAFENIB
     Indication: Hepatic cancer
  4. METHYLPREDNISOLONE [Concomitant]
     Active Substance: METHYLPREDNISOLONE
  5. AMOXICILLIN [Concomitant]
     Active Substance: AMOXICILLIN
  6. ACYCLOVIR [Concomitant]
     Active Substance: ACYCLOVIR
  7. CEFTRIAXONE [Concomitant]
     Active Substance: CEFTRIAXONE\CEFTRIAXONE SODIUM
  8. PIPERACILLIN AND TAZOBACTAM [Concomitant]
     Active Substance: PIPERACILLIN SODIUM\TAZOBACTAM SODIUM

REACTIONS (2)
  - Noninfective encephalitis [Unknown]
  - Off label use [Unknown]
